FAERS Safety Report 4706661-1 (Version None)
Quarter: 2005Q2

REPORT INFORMATION
  Report Type: 
  Country: None (occurrence: None)
  Receive Date: 20050629
  Receipt Date: 20050328
  Transmission Date: 20051028
  Serious: No
  Sender: FDA-Public Use
  Company Number: 05P-163-0295344-00

PATIENT
  Age: 63 Year
  Sex: Female
  Weight: 52.1637 kg

DRUGS (10)
  1. HUMIRA [Suspect]
     Indication: RHEUMATOID ARTHRITIS
     Dosage: 40 MG, 1 IN 2 WK, SUBCUTANEOUS
     Route: 058
     Dates: start: 20050201
  2. METHOTREXATE SODIUM [Concomitant]
  3. PREDNISONE TAB [Concomitant]
  4. RISEDRONATE SODIUM [Concomitant]
  5. SULFASALAZINE [Concomitant]
  6. ERGOCALCIFEROL [Concomitant]
  7. CALCIUM CARBONATE [Concomitant]
  8. HYDROXYCHLOROQUINE PHOSPHATE [Concomitant]
  9. ARTHROTEC [Concomitant]
  10. VICODIN [Concomitant]

REACTIONS (4)
  - ABDOMINAL PAIN [None]
  - DIARRHOEA [None]
  - PNEUMONIA [None]
  - VOMITING [None]
